FAERS Safety Report 9475274 (Version 3)
Quarter: 2013Q4

REPORT INFORMATION
  Report Type: Spontaneous
  Country: US (occurrence: US)
  Receive Date: 20130826
  Receipt Date: 20131002
  Transmission Date: 20140711
  Serious: No
  Sender: FDA-Public Use
  Company Number: US-B.I. PHARMACEUTICALS,INC./RIDGEFIELD-2013-BI-24856BP

PATIENT
  Age: 84 Year
  Sex: Female
  Weight: 82 kg

DRUGS (1)
  1. CATAPRES TTS [Suspect]
     Indication: HYPERTENSION
     Dosage: STRENGTH: 5.0 MG (0.2 MG / DAY);
     Route: 061

REACTIONS (5)
  - Blood pressure increased [Recovered/Resolved]
  - Chest pain [Recovered/Resolved]
  - Asthenia [Recovered/Resolved]
  - Restless legs syndrome [Recovered/Resolved]
  - Drug ineffective [Recovered/Resolved]
